FAERS Safety Report 13942574 (Version 2)
Quarter: 2018Q2

REPORT INFORMATION
  Report Type: Spontaneous
  Country: NL (occurrence: NL)
  Receive Date: 20170906
  Receipt Date: 20180507
  Transmission Date: 20180711
  Serious: Yes (Death, Other)
  Sender: FDA-Public Use
  Company Number: NL-BAUSCH-BL-2017-026446

PATIENT
  Age: 54 Year
  Sex: Male

DRUGS (2)
  1. ALDARA [Suspect]
     Active Substance: IMIQUIMOD
     Indication: ACTINIC KERATOSIS
     Route: 003
     Dates: start: 20170519, end: 20170526
  2. ALDARA [Suspect]
     Active Substance: IMIQUIMOD
     Indication: SKIN PAPILLOMA

REACTIONS (5)
  - Completed suicide [Fatal]
  - Application site pain [Unknown]
  - Hypersensitivity [Fatal]
  - Swelling face [Fatal]
  - Depressive symptom [Unknown]

NARRATIVE: CASE EVENT DATE: 201705
